FAERS Safety Report 8911688 (Version 1)
Quarter: 2012Q4

REPORT INFORMATION
  Report Type: 
  Country: US (occurrence: US)
  Receive Date: 20121116
  Receipt Date: 20121116
  Transmission Date: 20130627
  Serious: Yes (Hospitalization)
  Sender: FDA-Public Use
  Company Number: US-BAYER-2012-117938

PATIENT
  Age: 33 Year
  Sex: Female
  Weight: 64 kg

DRUGS (6)
  1. YAZ [Suspect]
  2. GIANVI [Suspect]
  3. PERCOCET [Concomitant]
  4. OXYCODONE [Concomitant]
  5. ZOFRAN [Concomitant]
     Dosage: UNK UNK, PRN
  6. AMBIEN [Concomitant]
     Dosage: UNK UNK, HS

REACTIONS (1)
  - Deep vein thrombosis [None]
